FAERS Safety Report 12693791 (Version 3)
Quarter: 2016Q4

REPORT INFORMATION
  Report Type: Spontaneous
  Country: US (occurrence: US)
  Receive Date: 20160829
  Receipt Date: 20161010
  Transmission Date: 20170207
  Serious: Yes (Other)
  Sender: FDA-Public Use
  Company Number: US-PFIZER INC-2016286870

PATIENT
  Age: 66 Year
  Sex: Male
  Weight: 85.26 kg

DRUGS (3)
  1. IBRANCE [Suspect]
     Active Substance: PALBOCICLIB
     Indication: SARCOMA
     Dosage: 125 MG, CYCLIC(D1-D21 Q28D)
     Route: 048
     Dates: start: 20160603, end: 20160921
  2. IBRANCE [Suspect]
     Active Substance: PALBOCICLIB
     Dosage: 125 MG, CYCLIC, (DAY 1-21 Q 28 DAYS)
     Route: 048
     Dates: start: 20160603, end: 20160922
  3. IBRANCE [Suspect]
     Active Substance: PALBOCICLIB
     Dosage: 125 UNK, UNK
     Route: 048

REACTIONS (9)
  - Fall [Unknown]
  - Product use issue [Unknown]
  - Decreased appetite [Unknown]
  - Tremor [Unknown]
  - Neuralgia [Unknown]
  - Neoplasm progression [Unknown]
  - Fatigue [Unknown]
  - Laceration [Unknown]
  - Seizure [Unknown]

NARRATIVE: CASE EVENT DATE: 20160921
